FAERS Safety Report 11409889 (Version 1)
Quarter: 2015Q3

REPORT INFORMATION
  Report Type: Report from Study
  Country: US (occurrence: US)
  Receive Date: 20150824
  Receipt Date: 20150824
  Transmission Date: 20151125
  Serious: Yes (Death, Other)
  Sender: FDA-Public Use
  Company Number: US-ASTELLAS-2015US022283

PATIENT
  Sex: Male

DRUGS (19)
  1. AVASTIN [Suspect]
     Active Substance: BEVACIZUMAB
     Indication: BRAIN NEOPLASM MALIGNANT
     Dosage: 500 MG, QD OVER 30 MINUTES FOR 1 DAY
     Route: 042
     Dates: start: 20051202, end: 20060324
  2. AVASTIN [Suspect]
     Active Substance: BEVACIZUMAB
     Route: 042
     Dates: start: 20060818
  3. AVASTIN [Suspect]
     Active Substance: BEVACIZUMAB
     Dosage: 450 MG,QD OVER 30 MINUTES
     Route: 042
     Dates: start: 20060929, end: 20061110
  4. AVASTIN [Suspect]
     Active Substance: BEVACIZUMAB
     Dosage: 460 MG, QD OVER 30 MINUTES FOR 1 DAY
     Route: 042
     Dates: start: 20061124
  5. ALOXI [Concomitant]
     Active Substance: PALONOSETRON HYDROCHLORIDE
     Indication: PRODUCT USED FOR UNKNOWN INDICATION
     Dosage: UNK, QD (SHOT OVER 15 MINUTES FOR 1 DAY)
     Route: 042
  6. ARANESP [Concomitant]
     Active Substance: DARBEPOETIN ALFA
     Indication: PRODUCT USED FOR UNKNOWN INDICATION
     Route: 042
  7. ARANESP [Concomitant]
     Active Substance: DARBEPOETIN ALFA
     Dosage: 300 ?G, QD FOR 1D
     Route: 058
  8. IRINOTECAN HYDROCHLORIDE. [Concomitant]
     Active Substance: IRINOTECAN HYDROCHLORIDE
     Dosage: 270 MG, 1 IN 1D OVER 90 MINUTES
     Route: 042
  9. ERLOTINIB [Suspect]
     Active Substance: ERLOTINIB
     Indication: BRAIN NEOPLASM MALIGNANT
     Dosage: 150 MG, 1 IN 1D
     Route: 048
     Dates: start: 20051202, end: 20061212
  10. AVASTIN [Suspect]
     Active Substance: BEVACIZUMAB
     Route: 042
     Dates: start: 20060406, end: 20060504
  11. AVASTIN [Suspect]
     Active Substance: BEVACIZUMAB
     Route: 042
  12. AVASTIN [Suspect]
     Active Substance: BEVACIZUMAB
     Dosage: 475 MG, QD OVER 30 MINUTES FOR 1 DAY
     Route: 042
     Dates: start: 20060901, end: 20060915
  13. ATROPINE SULPHATE [Concomitant]
     Active Substance: ATROPINE SULFATE
     Indication: PRODUCT USED FOR UNKNOWN INDICATION
     Dosage: 0.25 MG, QD FOR 1 DAY PRN
     Route: 058
  14. DEXAMETHASONE SODIUM PHOSPHATE. [Concomitant]
     Active Substance: DEXAMETHASONE SODIUM PHOSPHATE
     Indication: PRODUCT USED FOR UNKNOWN INDICATION
     Dosage: 20 MG, QD OVER 15 MINUTES FOR 1 DAY
     Route: 042
  15. AVASTIN [Suspect]
     Active Substance: BEVACIZUMAB
     Dosage: 525 MG, QD OVER 30 MINUTES FOR 1 DAY
     Route: 042
     Dates: start: 20060518, end: 20060804
  16. NEULASTA [Concomitant]
     Active Substance: PEGFILGRASTIM
     Indication: PRODUCT USED FOR UNKNOWN INDICATION
     Dosage: 6 MG, 1 IN 1D
     Route: 058
  17. AVASTIN [Suspect]
     Active Substance: BEVACIZUMAB
     Route: 042
     Dates: start: 20061208, end: 20061208
  18. IRINOTECAN HYDROCHLORIDE. [Concomitant]
     Active Substance: IRINOTECAN HYDROCHLORIDE
     Indication: PRODUCT USED FOR UNKNOWN INDICATION
     Dosage: 290 MG,QD OVER 90 MINUTES FOR 1 DAY
     Route: 042
  19. IRINOTECAN HYDROCHLORIDE. [Concomitant]
     Active Substance: IRINOTECAN HYDROCHLORIDE
     Dosage: 280 MG, 1 IN 1 MIN OVER 90 MINUTES
     Route: 042

REACTIONS (20)
  - Rash papular [Unknown]
  - Mucous membrane disorder [Unknown]
  - Depression [Unknown]
  - Death [Fatal]
  - Astrocytoma [Unknown]
  - Speech disorder [Unknown]
  - Constipation [Unknown]
  - Visual impairment [Unknown]
  - Neutropenia [Unknown]
  - Arthralgia [Unknown]
  - Mental status changes [Unknown]
  - Paraesthesia [Unknown]
  - Alopecia [Unknown]
  - Anxiety [Unknown]
  - Decreased appetite [Unknown]
  - Nausea [Unknown]
  - Diarrhoea [Unknown]
  - Fatigue [Unknown]
  - Hemiparesis [Unknown]
  - Pain [Unknown]
